FAERS Safety Report 11567153 (Version 1)
Quarter: 2015Q3

REPORT INFORMATION
  Report Type: Spontaneous
  Country: US (occurrence: US)
  Receive Date: 20150916
  Receipt Date: 20150916
  Transmission Date: 20151125
  Serious: No
  Sender: FDA-Public Use
  Company Number: US-ELI_LILLY_AND_COMPANY-US200907001882

PATIENT
  Age: 81 Year
  Sex: Female

DRUGS (3)
  1. FORTEO [Suspect]
     Active Substance: TERIPARATIDE
     Dosage: 20 UG, DAILY (1/D)
     Dates: start: 20090719
  2. FORTEO [Suspect]
     Active Substance: TERIPARATIDE
     Indication: OSTEOPOROSIS
     Dosage: UNK, UNK
     Dates: start: 200905, end: 20090706
  3. FORTEO [Suspect]
     Active Substance: TERIPARATIDE
     Dosage: UNK, UNK
     Dates: start: 20090708, end: 20090716

REACTIONS (8)
  - Sleep disorder [Recovering/Resolving]
  - Arthralgia [Unknown]
  - Blood pressure increased [Unknown]
  - Contusion [Recovered/Resolved]
  - Arthritis [Not Recovered/Not Resolved]
  - Headache [Recovered/Resolved]
  - Fear [Unknown]
  - Pain [Unknown]

NARRATIVE: CASE EVENT DATE: 2009
